FAERS Safety Report 24743052 (Version 6)
Quarter: 2025Q2

REPORT INFORMATION
  Report Type: Spontaneous
  Country: US (occurrence: US)
  Receive Date: 20241217
  Receipt Date: 20250609
  Transmission Date: 20250716
  Serious: Yes (Other)
  Sender: BRISTOL-MYERS SQUIBB COMPANY
  Company Number: US-BRISTOL-MYERS SQUIBB COMPANY-2024-195053

PATIENT
  Age: 74 Year
  Sex: Male

DRUGS (5)
  1. LENALIDOMIDE [Suspect]
     Active Substance: LENALIDOMIDE
     Indication: Plasma cell myeloma
     Route: 048
     Dates: start: 20241207
  2. LENALIDOMIDE [Suspect]
     Active Substance: LENALIDOMIDE
     Route: 048
  3. LENALIDOMIDE [Suspect]
     Active Substance: LENALIDOMIDE
     Route: 048
  4. LENALIDOMIDE [Suspect]
     Active Substance: LENALIDOMIDE
     Dosage: FREQ- TAKE 1 CAPSULE BY ORAL ROUTE DAY
     Route: 048
  5. LENALIDOMIDE [Suspect]
     Active Substance: LENALIDOMIDE
     Dosage: FREQ- TAKE 1 CAPSULE BY ORAL ROUTE DAY
     Route: 048
     Dates: start: 20241207

REACTIONS (5)
  - Pain in extremity [Unknown]
  - Product use issue [Unknown]
  - Product distribution issue [Unknown]
  - Therapy interrupted [Unknown]
  - Bronchitis [Not Recovered/Not Resolved]
